FAERS Safety Report 8452160-3 (Version None)
Quarter: 2012Q2

REPORT INFORMATION
  Report Type: 
  Country: None (occurrence: None)
  Receive Date: 20120620
  Receipt Date: 20120402
  Transmission Date: 20120825
  Serious: No
  Sender: FDA-Public Use
  Company Number: US-VERTEX PHARMACEUTICALS INC.-AE-2012-004688

PATIENT
  Sex: Female
  Weight: 63.56 kg

DRUGS (4)
  1. RIBAVIRIN [Concomitant]
     Indication: HEPATITIS C
     Route: 048
     Dates: start: 20120322
  2. BIRTH CONTROL PILLS [Concomitant]
     Indication: CONTRACEPTION
  3. INCIVEK [Suspect]
     Indication: HEPATITIS C
     Route: 048
     Dates: start: 20120322
  4. PEGASYS [Concomitant]
     Indication: HEPATITIS C
     Route: 058
     Dates: start: 20120322

REACTIONS (4)
  - DIARRHOEA [None]
  - ANORECTAL DISCOMFORT [None]
  - HAEMATOCHEZIA [None]
  - PAINFUL DEFAECATION [None]
